FAERS Safety Report 8212373-2 (Version None)
Quarter: 2012Q1

REPORT INFORMATION
  Report Type: 
  Country: None (occurrence: None)
  Receive Date: 20120315
  Receipt Date: 20120308
  Transmission Date: 20120608
  Serious: Yes (Hospitalization)
  Sender: FDA-Public Use
  Company Number: IE-MEDIMMUNE-MEDI-0015141

PATIENT
  Sex: Female
  Weight: 6.42 kg

DRUGS (1)
  1. SYNAGIS [Suspect]
     Route: 030
     Dates: start: 20120110, end: 20120110

REACTIONS (1)
  - LOWER RESPIRATORY TRACT INFECTION [None]
